FAERS Safety Report 23236859 (Version 1)
Quarter: 2023Q4

REPORT INFORMATION
  Report Type: Spontaneous
  Country: IQ (occurrence: IQ)
  Receive Date: 20231128
  Receipt Date: 20231128
  Transmission Date: 20240110
  Serious: Yes (Death, Other)
  Sender: FDA-Public Use
  Company Number: IQ-009507513-2311IRQ009536

PATIENT
  Age: 60 Year
  Sex: Male

DRUGS (1)
  1. KEYTRUDA [Suspect]
     Active Substance: PEMBROLIZUMAB
     Indication: Metastatic malignant melanoma
     Dosage: 11 CYCLES

REACTIONS (4)
  - Malignant neoplasm progression [Fatal]
  - Encephalitis autoimmune [Unknown]
  - Inappropriate schedule of product administration [Unknown]
  - Product availability issue [Unknown]
